FAERS Safety Report 24620589 (Version 2)
Quarter: 2024Q4

REPORT INFORMATION
  Report Type: Spontaneous
  Country: ES (occurrence: ES)
  Receive Date: 20241114
  Receipt Date: 20241121
  Transmission Date: 20250114
  Serious: Yes (Hospitalization, Other)
  Sender: SANOFI AVENTIS
  Company Number: ES-BIOVITRUM-2024-ES-014379

PATIENT
  Age: 30 Year
  Sex: Male
  Weight: 49.9 kg

DRUGS (20)
  1. ELOCTA [Suspect]
     Active Substance: EFMOROCTOCOG ALFA
     Indication: Factor VIII deficiency
     Dosage: UNTIL IMPROVEMENT
     Dates: start: 202305
  2. ELOCTA [Suspect]
     Active Substance: EFMOROCTOCOG ALFA
     Indication: Factor VIII deficiency
     Dosage: UNTIL IMPROVEMENT
     Dates: start: 202305
  3. ELOCTA [Suspect]
     Active Substance: EFMOROCTOCOG ALFA
     Dosage: 2.000/2.5 DAYS (44.4U/KG) ADMINISTRATION INTERVAL 60 H (2.5 DAYS) 95% CI 36-72 MAXIMUM VALUE 0.94 UI
     Dates: start: 202309, end: 202311
  4. ELOCTA [Suspect]
     Active Substance: EFMOROCTOCOG ALFA
     Dosage: 2.000/2.5 DAYS (44.4U/KG) ADMINISTRATION INTERVAL 60 H (2.5 DAYS) 95% CI 36-72 MAXIMUM VALUE 0.94 UI
     Dates: start: 202309, end: 202311
  5. ELOCTA [Suspect]
     Active Substance: EFMOROCTOCOG ALFA
     Dosage: 3000U/2,  (66,67U/KG)
     Dates: start: 202311, end: 20231227
  6. ELOCTA [Suspect]
     Active Substance: EFMOROCTOCOG ALFA
     Dosage: 3000U/2,  (66,67U/KG)
     Dates: start: 202311, end: 20231227
  7. ELOCTA [Suspect]
     Active Substance: EFMOROCTOCOG ALFA
     Dosage: 2.000/2.5 DAYS (44.4U/KG) ADMINISTRATION INTERVAL 60 H (2.5 DAYS) 95% CI 36-72 MAXIMUM VALUE 0.94 UI
     Dates: start: 20231013, end: 202311
  8. ELOCTA [Suspect]
     Active Substance: EFMOROCTOCOG ALFA
     Dosage: 2.000/2.5 DAYS (44.4U/KG) ADMINISTRATION INTERVAL 60 H (2.5 DAYS) 95% CI 36-72 MAXIMUM VALUE 0.94 UI
     Dates: start: 20231013, end: 202311
  9. ELOCTA [Suspect]
     Active Substance: EFMOROCTOCOG ALFA
     Dosage: 3000U/2.5 DAYS
     Dates: start: 20231110
  10. ELOCTA [Suspect]
     Active Substance: EFMOROCTOCOG ALFA
     Dosage: 3000U/2.5 DAYS
     Dates: start: 20231110
  11. ELOCTA [Suspect]
     Active Substance: EFMOROCTOCOG ALFA
     Dosage: UNTIL IMPROVEMENT
     Dates: start: 202305
  12. ELOCTA [Suspect]
     Active Substance: EFMOROCTOCOG ALFA
     Dosage: UNTIL IMPROVEMENT
     Dates: start: 202305
  13. EFANESOCTOCOG ALFA [Suspect]
     Active Substance: EFANESOCTOCOG ALFA
     Indication: Factor VIII deficiency
     Dosage: 3.000U (50IU/KG/WEEK), QW
  14. EFANESOCTOCOG ALFA [Suspect]
     Active Substance: EFANESOCTOCOG ALFA
     Dosage: 3.000U (50IU/KG/WEEK)
  15. EMICIZUMAB [Suspect]
     Active Substance: EMICIZUMAB
     Indication: Factor VIII deficiency
     Dates: end: 202408
  16. EMICIZUMAB [Suspect]
     Active Substance: EMICIZUMAB
     Dosage: UNK
     Dates: end: 20240807
  17. METAMIZOLE [Concomitant]
     Active Substance: METAMIZOLE
     Indication: Product used for unknown indication
     Dosage: ON DEMAND
  18. TRAMADOL [Concomitant]
     Active Substance: TRAMADOL
     Indication: Product used for unknown indication
     Dosage: ON DEMAND
  19. ACETAMINOPHEN [Concomitant]
     Active Substance: ACETAMINOPHEN
     Indication: Product used for unknown indication
     Dosage: ON DEMAND
  20. CELECOXIB [Concomitant]
     Active Substance: CELECOXIB
     Indication: Product used for unknown indication
     Dosage: ON DEMAND

REACTIONS (3)
  - Haemophilic arthropathy [Not Recovered/Not Resolved]
  - Therapeutic response decreased [Not Recovered/Not Resolved]
  - Off label use [Recovered/Resolved]

NARRATIVE: CASE EVENT DATE: 20230601
